FAERS Safety Report 23254227 (Version 1)
Quarter: 2023Q4

REPORT INFORMATION
  Report Type: Spontaneous
  Country: NL (occurrence: NL)
  Receive Date: 20231202
  Receipt Date: 20231202
  Transmission Date: 20240110
  Serious: Yes (Death)
  Sender: FDA-Public Use
  Company Number: None

PATIENT
  Age: 76 Year
  Sex: Female
  Weight: 58 kg

DRUGS (10)
  1. PACLITAXEL [Suspect]
     Active Substance: PACLITAXEL
     Indication: Oesophageal carcinoma
     Dosage: ACCORDING TO CROSS SCHEME
     Dates: start: 20230426, end: 20230607
  2. MIDAZOLAM HYDROCHLORIDE [Concomitant]
     Active Substance: MIDAZOLAM HYDROCHLORIDE
  3. PROPOFOL [Concomitant]
     Active Substance: PROPOFOL
  4. OMEPRAZOLE [Concomitant]
     Active Substance: OMEPRAZOLE
     Dosage: GASTRO-RESISTANT CAPSULE, 20 MG
  5. FENTANYL [Concomitant]
     Active Substance: FENTANYL\FENTANYL CITRATE
  6. CAPTOPRIL [Concomitant]
     Active Substance: CAPTOPRIL
  7. COTRIMOXAZOLE [Concomitant]
     Active Substance: SULFAMETHOXAZOLE\TRIMETHOPRIM
     Dosage: 3X DAILY 1920MG
  8. NADROPARIN [Concomitant]
     Active Substance: NADROPARIN
     Dosage: FRAXIPARINE SOLUTION FOR INJECTION 2850 IU/0.3 ML (9500 IU/ML) DISPOSABLE SYRINGE
  9. OXAZEPAM [Concomitant]
     Active Substance: OXAZEPAM
     Dosage: TABLET 10 MG, 5MG PER DAY AS REQUIRED
  10. PREDNISOLONE [Concomitant]
     Active Substance: PREDNISOLONE
     Dosage: CAPSULE 60 MG

REACTIONS (1)
  - Interstitial lung disease [Fatal]
